FAERS Safety Report 9827333 (Version 1)
Quarter: 2014Q1

REPORT INFORMATION
  Report Type: Spontaneous
  Country: GB (occurrence: GB)
  Receive Date: 20140117
  Receipt Date: 20140117
  Transmission Date: 20141002
  Serious: Yes (Other)
  Sender: FDA-Public Use
  Company Number: GB-PFIZER INC-2014012421

PATIENT
  Age: 70 Year
  Sex: Female
  Weight: 67.95 kg

DRUGS (4)
  1. LIPITOR [Suspect]
     Dosage: UNK
     Route: 048
     Dates: start: 2005, end: 2009
  2. EZETROL [Suspect]
     Indication: HYPERCHOLESTEROLAEMIA
     Dosage: UNK
     Route: 048
     Dates: start: 2010, end: 20130103
  3. AMLODIPINE [Concomitant]
     Dosage: UNK
  4. THYROXINE [Concomitant]
     Dosage: UNK

REACTIONS (2)
  - Muscular weakness [Recovered/Resolved with Sequelae]
  - Pain [Recovered/Resolved with Sequelae]
